FAERS Safety Report 5359505-1 (Version None)
Quarter: 2007Q2

REPORT INFORMATION
  Report Type: 
  Country: None (occurrence: None)
  Receive Date: 20070615
  Receipt Date: 20070605
  Transmission Date: 20071010
  Serious: Yes (Death)
  Sender: FDA-Public Use
  Company Number: GB-PFIZER INC-2007046726

PATIENT
  Sex: Female

DRUGS (12)
  1. SU-011,248 [Suspect]
     Indication: RENAL CELL CARCINOMA STAGE UNSPECIFIED
     Route: 048
  2. ALFACALCIDOL [Concomitant]
  3. ALLOPURINOL [Concomitant]
  4. AMLODIPINE [Concomitant]
  5. BECLOMETHASONE DIPROPIONATE [Concomitant]
  6. BISOPROLOL FUMARATE [Concomitant]
  7. CALCIUM CARBONATE [Concomitant]
  8. DOMPERIDONE [Concomitant]
  9. HYDROCORTISONE [Concomitant]
  10. IRON [Concomitant]
  11. EPOETIN [Concomitant]
  12. OMEPRAZOLE [Concomitant]

REACTIONS (1)
  - DEATH [None]
